FAERS Safety Report 5200039-2 (Version None)
Quarter: 2007Q1

REPORT INFORMATION
  Report Type: 
  Country: None (occurrence: None)
  Receive Date: 20070105
  Receipt Date: 20061227
  Transmission Date: 20070707
  Serious: Yes (Death)
  Sender: FDA-Public Use
  Company Number: JP-ELI_LILLY_AND_COMPANY-JP200612004312

PATIENT
  Age: 67 Year
  Sex: Male

DRUGS (3)
  1. GEMZAR [Suspect]
     Indication: MALIGNANT NEOPLASM OF RENAL PELVIS
     Dosage: UNK, UNK
     Route: 042
     Dates: start: 20050801, end: 20050801
  2. TAXOL [Concomitant]
     Indication: MALIGNANT NEOPLASM OF RENAL PELVIS
     Dosage: UNK, UNK
     Route: 042
     Dates: start: 20050801, end: 20050801
  3. PARAPLATIN [Concomitant]
     Indication: MALIGNANT NEOPLASM OF RENAL PELVIS
     Dosage: UNK, UNK
     Route: 042
     Dates: start: 20050801, end: 20050801

REACTIONS (1)
  - FEBRILE NEUTROPENIA [None]
